FAERS Safety Report 23770233 (Version 3)
Quarter: 2025Q2

REPORT INFORMATION
  Report Type: Spontaneous
  Country: US (occurrence: US)
  Receive Date: 20240422
  Receipt Date: 20250609
  Transmission Date: 20250716
  Serious: No
  Sender: SANOFI AVENTIS
  Company Number: US-SA-SAC20240411000085

PATIENT
  Age: 45 Year
  Sex: Female

DRUGS (1)
  1. DUPIXENT [Suspect]
     Active Substance: DUPILUMAB
     Indication: Dermatitis atopic
     Dosage: 300 MG, QOW
     Route: 058

REACTIONS (6)
  - Immune system disorder [Unknown]
  - Dermatitis atopic [Unknown]
  - Rash [Unknown]
  - Therapeutic response decreased [Unknown]
  - Injection site pain [Unknown]
  - Drug ineffective [Unknown]
